FAERS Safety Report 17982971 (Version 3)
Quarter: 2020Q3

REPORT INFORMATION
  Report Type: Spontaneous
  Country: US (occurrence: US)
  Receive Date: 20200706
  Receipt Date: 20200929
  Transmission Date: 20201103
  Serious: No
  Sender: FDA-Public Use
  Company Number: US-PFIZER INC-2020254894

PATIENT
  Age: 71 Year
  Sex: Female

DRUGS (2)
  1. IBRANCE [Suspect]
     Active Substance: PALBOCICLIB
     Indication: BREAST CANCER METASTATIC
     Dosage: 75 MG, CYCLIC (75 MG ONCE A DAY X 21 DAYS EVERY 28 DAYS)
     Dates: start: 20181128, end: 2018
  2. IBRANCE [Suspect]
     Active Substance: PALBOCICLIB
     Dosage: UNK
     Dates: start: 201812

REACTIONS (6)
  - Red blood cell count decreased [Unknown]
  - Neutrophil count decreased [Unknown]
  - Herpes zoster [Unknown]
  - Pain [Unknown]
  - White blood cell count decreased [Unknown]
  - Fatigue [Not Recovered/Not Resolved]

NARRATIVE: CASE EVENT DATE: 201812
